FAERS Safety Report 5968732-1 (Version None)
Quarter: 2008Q4

REPORT INFORMATION
  Report Type: 
  Country: None (occurrence: None)
  Receive Date: 20081121
  Receipt Date: 20081121
  Transmission Date: 20090506
  Serious: No
  Sender: FDA-Public Use
  Company Number: None

PATIENT

DRUGS (1)
  1. LEVAQUIN [Suspect]
     Dosage: 1 DOSE EACH
     Dates: start: 20081119, end: 20081119

REACTIONS (4)
  - ERYTHEMA [None]
  - NEEDLE TRACK MARKS [None]
  - PRURITUS [None]
  - VEIN DISORDER [None]
